FAERS Safety Report 16367831 (Version 2)
Quarter: 2019Q3

REPORT INFORMATION
  Report Type: Spontaneous
  Country: US (occurrence: US)
  Receive Date: 20190529
  Receipt Date: 20190712
  Transmission Date: 20191004
  Serious: Yes (Other)
  Sender: FDA-Public Use
  Company Number: US-BAYER-2019-105036

PATIENT
  Age: 27 Year
  Sex: Female
  Weight: 92.08 kg

DRUGS (6)
  1. MIRENA [Suspect]
     Active Substance: LEVONORGESTREL
     Indication: CONTRACEPTION
     Dosage: 20 MCG/24HR, CONT
     Route: 015
     Dates: start: 20140314, end: 20181021
  2. MIRENA [Suspect]
     Active Substance: LEVONORGESTREL
     Indication: CONTRACEPTION
     Dosage: 20 MCG/24HR, CONT
     Route: 015
     Dates: start: 20181021, end: 20190527
  3. MIRENA [Suspect]
     Active Substance: LEVONORGESTREL
     Indication: CONTRACEPTION
     Dosage: 20 MCG/24HR, CONT
     Route: 015
     Dates: start: 20190527
  4. MIRENA [Suspect]
     Active Substance: LEVONORGESTREL
     Indication: CONTRACEPTION
  5. LEXAPRO [Concomitant]
     Active Substance: ESCITALOPRAM OXALATE
     Route: 048
  6. FLAGYL [Concomitant]
     Active Substance: METRONIDAZOLE\METRONIDAZOLE HYDROCHLORIDE
     Route: 048

REACTIONS (25)
  - Post procedural discomfort [None]
  - Menorrhagia [Not Recovered/Not Resolved]
  - Abdominal pain lower [Recovered/Resolved]
  - Premenstrual dysphoric disorder [None]
  - Vaginal haemorrhage [None]
  - Herpes simplex [None]
  - Bacterial vulvovaginitis [None]
  - Vaginal infection [None]
  - Vaginal discharge [None]
  - Insomnia [None]
  - Palpitations [None]
  - Depression [None]
  - Endometrial thickening [None]
  - Bacterial vaginosis [None]
  - Acne [None]
  - Night sweats [None]
  - Amenorrhoea [None]
  - Dysfunctional uterine bleeding [None]
  - Genital haemorrhage [Not Recovered/Not Resolved]
  - Menstruation irregular [None]
  - Vaginal odour [None]
  - Anxiety [None]
  - Device dislocation [Recovered/Resolved]
  - Procedural pain [Recovered/Resolved]
  - Headache [None]

NARRATIVE: CASE EVENT DATE: 20160707
